FAERS Safety Report 23027084 (Version 4)
Quarter: 2024Q1

REPORT INFORMATION
  Report Type: Report from Study
  Country: US (occurrence: US)
  Receive Date: 20231004
  Receipt Date: 20240228
  Transmission Date: 20240410
  Serious: Yes (Other)
  Sender: FDA-Public Use
  Company Number: US-INCYTE CORPORATION-2023IN010090

PATIENT

DRUGS (3)
  1. JAKAFI [Suspect]
     Active Substance: RUXOLITINIB
     Indication: Polycythaemia vera
     Dosage: 20 MILLIGRAM, BID
     Route: 048
  2. JAKAFI [Suspect]
     Active Substance: RUXOLITINIB
     Dosage: 20 MILLIGRAM, BID
     Route: 048
     Dates: start: 20220614
  3. JAKAFI [Suspect]
     Active Substance: RUXOLITINIB
     Dosage: 10 MILLIGRAM
     Route: 048

REACTIONS (10)
  - Cerebrovascular accident [Unknown]
  - Cardiac disorder [Unknown]
  - Feeding disorder [Unknown]
  - Gait inability [Unknown]
  - Haemorrhage [Unknown]
  - Haemorrhoids [Unknown]
  - Sexual dysfunction [Unknown]
  - Treatment noncompliance [Unknown]
  - Incorrect dose administered [Unknown]
  - Diarrhoea [Unknown]
